FAERS Safety Report 15809045 (Version 1)
Quarter: 2019Q1

REPORT INFORMATION
  Report Type: Spontaneous
  Country: DK (occurrence: DK)
  Receive Date: 20190110
  Receipt Date: 20190110
  Transmission Date: 20190417
  Serious: Yes (Hospitalization)
  Sender: FDA-Public Use
  Company Number: DK-009507513-1901DNK001812

PATIENT
  Age: 74 Year
  Sex: Female

DRUGS (19)
  1. CARVEDILOL. [Concomitant]
     Active Substance: CARVEDILOL
     Indication: CARDIAC DISORDER
     Dosage: STRENGTH: 25 MG.
     Route: 048
     Dates: start: 20150717
  2. BONDRONAT [Suspect]
     Active Substance: IBANDRONATE SODIUM
     Indication: MUSCULOSKELETAL DISORDER
     Dosage: STRENGTH: 50 MG.
     Route: 048
     Dates: start: 20160222, end: 20180618
  3. ZUCLOPENTHIXOL [Concomitant]
     Active Substance: ZUCLOPENTHIXOL
     Indication: MENTAL DISORDER
     Dosage: STRENGTH: 2 MG. DOSE: 2 TABLETS IN THE MORNING, 3 TABLETS AT NIGHT
     Route: 048
     Dates: start: 20141001
  4. FENTANYL. [Concomitant]
     Active Substance: FENTANYL
     Indication: PAIN
     Dosage: STRENGTH: 25 MICROGRAMS (MCG)/DOSE + 100 MCG/DOSE
     Route: 062
     Dates: start: 20160711
  5. GABAPENTIN. [Concomitant]
     Active Substance: GABAPENTIN
     Indication: NEURALGIA
     Dosage: STRENGTH: 300 MG.
     Route: 048
     Dates: start: 20160922
  6. RAMIPRIL. [Concomitant]
     Active Substance: RAMIPRIL
     Indication: CARDIAC FAILURE
     Dosage: STRENGTH: 2.5 MG.
     Route: 048
     Dates: start: 20150706
  7. DOMPERIDONE [Concomitant]
     Active Substance: DOMPERIDONE
     Indication: NAUSEA
     Dosage: STRENGTH: 10 MG. DOSE: 1 TABLET AS NECESSARY WITH A MAXIMUM OF 3 TIMES DAILY.
     Route: 048
     Dates: start: 20161210
  8. ALENDRONATE SODIUM. [Suspect]
     Active Substance: ALENDRONATE SODIUM
     Indication: MUSCULOSKELETAL DISORDER
     Dosage: STRENGTH: NOT KNOWN
     Route: 048
     Dates: start: 20161215, end: 20161222
  9. OMEPRAZOLE. [Concomitant]
     Active Substance: OMEPRAZOLE
     Indication: GASTROOESOPHAGEAL REFLUX DISEASE
     Dosage: STRENGTH: 20 MG.
     Route: 048
     Dates: start: 20160912
  10. POLYETHYLENE GLYCOL [Concomitant]
     Active Substance: POLYETHYLENE GLYCOLS
     Indication: CONSTIPATION
     Dosage: STRENGTH: UNKNOWN. DOSE: 1 DOSE AS NECESSARY WITH A MAXIMUM OF 2 TIMES DAILY.
     Route: 048
     Dates: start: 20160920
  11. QUININE [Concomitant]
     Active Substance: QUININE
     Indication: MUSCLE SPASMS
     Dosage: STRENGTH: 100 MG.
     Route: 048
     Dates: start: 20160123, end: 20180920
  12. ZOMETA [Suspect]
     Active Substance: ZOLEDRONIC ACID
     Indication: PRODUCT USED FOR UNKNOWN INDICATION
     Dosage: STRENGTH: UNKNOWN
     Route: 042
     Dates: start: 20150427, end: 20150924
  13. ACETAMINOPHEN. [Concomitant]
     Active Substance: ACETAMINOPHEN
     Indication: PAIN
     Dosage: STRENGTH: 665 MG, DOSE: 3990 MG (MILLIGRAM)
     Route: 048
     Dates: start: 20160920
  14. CALCIUM (UNSPECIFIED) (+) VITAMIN D (UNSPECIFIED) [Concomitant]
     Active Substance: CALCIUM CARBONATE\VITAMIN D
     Indication: VITAMIN SUPPLEMENTATION
     Dosage: STRENGTH: UNKNOWN
     Route: 048
     Dates: start: 20160608
  15. IBUPROFEN. [Concomitant]
     Active Substance: IBUPROFEN
     Indication: PAIN
     Dosage: STRENGTH: 400 MG. DOSE: 1 TABLET AS NECESSARY WITH A MAXIMUM OF 4 TIMES DAILY.
     Route: 048
     Dates: start: 20180826, end: 20180920
  16. QUETIAPINE FUMARATE. [Concomitant]
     Active Substance: QUETIAPINE FUMARATE
     Indication: SCHIZOPHRENIA
     Dosage: STRENGTH: 25 MG.
     Route: 048
     Dates: start: 20160424
  17. XGEVA [Suspect]
     Active Substance: DENOSUMAB
     Indication: BREAST CANCER METASTATIC
     Dosage: STRENGTH: 120 MG.
     Route: 058
     Dates: start: 20150924, end: 20151116
  18. MELATONIN [Concomitant]
     Active Substance: MELATONIN
     Indication: INSOMNIA
     Dosage: STRENGTH: 3 MG.
     Route: 048
     Dates: start: 20171026, end: 20180310
  19. EXEMESTANE. [Concomitant]
     Active Substance: EXEMESTANE
     Indication: BREAST CANCER
     Dosage: STRENGTH: 25 MG.
     Route: 048
     Dates: start: 20170213

REACTIONS (6)
  - Pain in jaw [Recovered/Resolved]
  - Exostosis of jaw [Recovered/Resolved]
  - Osteonecrosis of jaw [Recovered/Resolved]
  - Sequestrectomy [Recovered/Resolved]
  - Exposed bone in jaw [Recovered/Resolved]
  - Oral cavity fistula [Recovered/Resolved]

NARRATIVE: CASE EVENT DATE: 2018
